FAERS Safety Report 21931736 (Version 6)
Quarter: 2023Q4

REPORT INFORMATION
  Report Type: Report from Study
  Country: US (occurrence: US)
  Receive Date: 20230131
  Receipt Date: 20231114
  Transmission Date: 20240110
  Serious: No
  Sender: FDA-Public Use
  Company Number: US-002147023-NVSC2023US017563

PATIENT
  Age: 39 Year
  Sex: Female

DRUGS (2)
  1. KESIMPTA [Suspect]
     Active Substance: OFATUMUMAB
     Indication: Multiple sclerosis
     Dosage: 20 MG, QMO
     Route: 058
     Dates: start: 20221111, end: 20230828
  2. KESIMPTA [Suspect]
     Active Substance: OFATUMUMAB
     Dosage: 20 MG, QMO
     Route: 058

REACTIONS (7)
  - Dizziness [Recovering/Resolving]
  - Feeling abnormal [Recovering/Resolving]
  - Balance disorder [Recovering/Resolving]
  - Dry mouth [Recovering/Resolving]
  - Fatigue [Not Recovered/Not Resolved]
  - Headache [Recovering/Resolving]
  - Therapeutic response shortened [Unknown]

NARRATIVE: CASE EVENT DATE: 20221111
